FAERS Safety Report 9553938 (Version 1)
Quarter: 2013Q3

REPORT INFORMATION
  Report Type: Spontaneous
  Country: US (occurrence: None)
  Receive Date: 20130821
  Receipt Date: 20130821
  Transmission Date: 20140515
  Serious: Yes (Other)
  Sender: FDA-Public Use
  Company Number: 1000046868

PATIENT
  Age: 83 Year
  Sex: Male

DRUGS (14)
  1. TUDORZA PRESSAIR (ACLIDINIUM BROMIDE) (400 MICROGRAM, POWDER) [Suspect]
     Indication: EMPHYSEMA
     Dosage: 800 MCG (400 MCG, 2 IN 1 D), RESPIRATORY (INHALATION)
     Dates: start: 201306, end: 201306
  2. NEXIUM (ESOMEPRAZOLE) (ESOMEPRAZOLE) [Concomitant]
  3. FUROSEMIDE [Concomitant]
  4. SOTALOL (SOTALOL) (SOTALOL) [Concomitant]
  5. IPRATROPIUM (IPRATROPIUM) (IPRATROPIUM) [Concomitant]
  6. SIMVASTATIN (SIMNVASTATIN) (SIMVASTATIN) [Concomitant]
  7. QUINAPRIL (QUINAPRIL) (QUINAPRIL) [Concomitant]
  8. ZETIA (EZETIMIBE) (EZETIMIBE) [Concomitant]
  9. FINASTERIDE (FINASTERIDE) (FINASTERIDE) [Concomitant]
  10. NITROSTAT (GLYCERYL TRINITRATE) (GLYCERYL TRINITRATE) [Concomitant]
  11. VOLTAREN GEL (DICLOFENAC) DICLOFINAC) [Concomitant]
  12. RESTASIS (CICLOSPORIN) (CICLOSPORIN) [Concomitant]
  13. XARELTO (RIVAROXABAN) (RIVAROXABAN) [Concomitant]
  14. ALLOPURINOL (ALLOPURINOL) (ALLOPURINOL) [Concomitant]

REACTIONS (2)
  - Chest discomfort [None]
  - Hyperhidrosis [None]
